FAERS Safety Report 25866231 (Version 1)
Quarter: 2025Q3

REPORT INFORMATION
  Report Type: Spontaneous
  Country: US (occurrence: US)
  Receive Date: 20250930
  Receipt Date: 20250930
  Transmission Date: 20251020
  Serious: No
  Sender: 60 DEGREES PHARMACEUTICALS
  Company Number: US-60 DEGREES PHARMACEUTICALS, LLC-20250500001

PATIENT

DRUGS (2)
  1. ARAKODA [Suspect]
     Active Substance: TAFENOQUINE SUCCINATE
     Indication: Babesiosis
     Route: 048
     Dates: start: 20250519, end: 20250519
  2. ATOVAQUONE [Concomitant]
     Active Substance: ATOVAQUONE
     Indication: Product used for unknown indication
     Route: 065

REACTIONS (3)
  - Dysgeusia [Unknown]
  - Product odour abnormal [Unknown]
  - Product dose omission issue [Unknown]

NARRATIVE: CASE EVENT DATE: 20250519
